FAERS Safety Report 9844552 (Version 1)
Quarter: 2014Q1

REPORT INFORMATION
  Report Type: Spontaneous
  Country: US (occurrence: None)
  Receive Date: 20140123
  Receipt Date: 20140123
  Transmission Date: 20141002
  Serious: Yes (Hospitalization)
  Sender: FDA-Public Use
  Company Number: KAD201401-000072

PATIENT
  Age: 61 Year
  Sex: Male
  Weight: 81.7 kg

DRUGS (9)
  1. RIBAVIRIN (RIBAVIRIN) [Suspect]
     Route: 048
     Dates: start: 20130905
  2. SOFOSBUVIR [Suspect]
     Route: 048
     Dates: start: 20130905
  3. SPIRINOLACTONE (SPIRINOLACTONE) [Concomitant]
  4. OMEPRAZOLE (OMEPRAZOLE) [Concomitant]
  5. SERTRALINE (SERTRALINE) [Concomitant]
  6. ASPIRIN (ACETYLSALICYLIC ACID) [Concomitant]
  7. LACTULOSE (LACTULOSE) [Concomitant]
  8. FUROSEMIDE (FUROSEMIDE) [Concomitant]
  9. TACROLIMUS (TACROLIMUS) [Concomitant]

REACTIONS (2)
  - Ascites [None]
  - Peritonitis bacterial [None]
